FAERS Safety Report 8165351-6 (Version None)
Quarter: 2012Q1

REPORT INFORMATION
  Report Type: 
  Country: None (occurrence: None)
  Receive Date: 20120222
  Receipt Date: 20120222
  Transmission Date: 20120608
  Serious: No
  Sender: FDA-Public Use
  Company Number: None

PATIENT
  Age: 51 Year
  Sex: Male

DRUGS (1)
  1. CEFAZOLIN [Suspect]
     Dates: start: 20100105, end: 20100105

REACTIONS (3)
  - WEIGHT DECREASED [None]
  - HEPATITIS CHOLESTATIC [None]
  - CHOLANGITIS [None]
